FAERS Safety Report 11323607 (Version 1)
Quarter: 2015Q3

REPORT INFORMATION
  Report Type: Spontaneous
  Country: CH (occurrence: CH)
  Receive Date: 20150730
  Receipt Date: 20150730
  Transmission Date: 20151125
  Serious: Yes (Other)
  Sender: FDA-Public Use
  Company Number: CH-GLAXOSMITHKLINE INC.-CH2015107392

PATIENT
  Age: 0 Year
  Sex: Female
  Weight: 3.74 kg

DRUGS (1)
  1. LAMICTAL [Suspect]
     Active Substance: LAMOTRIGINE
     Indication: EPILEPSY
     Route: 064
     Dates: start: 2013

REACTIONS (4)
  - Cyanosis neonatal [Recovered/Resolved]
  - Exposure during pregnancy [Recovered/Resolved]
  - Thrombocytosis [Unknown]
  - Exposure during breast feeding [Unknown]

NARRATIVE: CASE EVENT DATE: 201408
